FAERS Safety Report 18492369 (Version 1)
Quarter: 2020Q4

REPORT INFORMATION
  Report Type: Spontaneous
  Country: US (occurrence: US)
  Receive Date: 20201111
  Receipt Date: 20201111
  Transmission Date: 20210114
  Serious: Yes (Hospitalization)
  Sender: FDA-Public Use
  Company Number: US-PFIZER INC-2020052860

PATIENT
  Age: 76 Year
  Sex: Male

DRUGS (1)
  1. VYNDAQEL [Suspect]
     Active Substance: TAFAMIDIS MEGLUMINE
     Indication: CARDIAC AMYLOIDOSIS
     Dosage: 80 MG
     Dates: start: 20191004

REACTIONS (10)
  - Atrial flutter [Unknown]
  - Hiccups [Unknown]
  - Atrial fibrillation [Unknown]
  - Mitral valve incompetence [Unknown]
  - Troponin increased [Unknown]
  - Weight decreased [Unknown]
  - Atrial enlargement [Unknown]
  - Dyspnoea [Unknown]
  - Left ventricular hypertrophy [Unknown]
  - Left ventricular end-diastolic pressure increased [Unknown]
